FAERS Safety Report 11977900 (Version 3)
Quarter: 2016Q2

REPORT INFORMATION
  Report Type: Spontaneous
  Country: FR (occurrence: FR)
  Receive Date: 20160129
  Receipt Date: 20160615
  Transmission Date: 20160815
  Serious: Yes (Disabling, Other)
  Sender: FDA-Public Use
  Company Number: FR-AMGEN-FRASP2016008269

PATIENT
  Age: 34 Year
  Sex: Female
  Weight: 62 kg

DRUGS (1)
  1. XGEVA [Suspect]
     Active Substance: DENOSUMAB
     Indication: BONE GIANT CELL TUMOUR
     Dosage: 120 MG, Q4WK
     Route: 058
     Dates: start: 20121122

REACTIONS (5)
  - Intentional product misuse [Unknown]
  - Tooth extraction [Recovered/Resolved]
  - Osteonecrosis of jaw [Recovering/Resolving]
  - Sinusitis [Unknown]
  - Tooth loss [Unknown]

NARRATIVE: CASE EVENT DATE: 201404
